FAERS Safety Report 14756864 (Version 2)
Quarter: 2018Q2

REPORT INFORMATION
  Report Type: Report from Study
  Country: CA (occurrence: CA)
  Receive Date: 20180413
  Receipt Date: 20180426
  Transmission Date: 20180711
  Serious: Yes (Death)
  Sender: FDA-Public Use
  Company Number: CA-TOLMAR, INC.-2018CA003824

PATIENT

DRUGS (8)
  1. ROSUVASTATIN. [Concomitant]
     Active Substance: ROSUVASTATIN
  2. RANITIDINE. [Concomitant]
     Active Substance: RANITIDINE
  3. HYDROMORPHONE [Concomitant]
     Active Substance: HYDROMORPHONE
  4. TYLENOL [Concomitant]
     Active Substance: ACETAMINOPHEN
  5. RAMIPRIL. [Concomitant]
     Active Substance: RAMIPRIL
  6. ELIGARD [Suspect]
     Active Substance: LEUPROLIDE ACETATE
     Indication: PROSTATE CANCER
     Dosage: 22.5 MG, Q3MONTHS
     Route: 058
     Dates: start: 20170815, end: 20180129
  7. DEXAMETHASONE. [Concomitant]
     Active Substance: DEXAMETHASONE
  8. DONEPEZIL. [Concomitant]
     Active Substance: DONEPEZIL

REACTIONS (1)
  - Prostate cancer metastatic [Fatal]
